FAERS Safety Report 5710939-2 (Version None)
Quarter: 2008Q2

REPORT INFORMATION
  Report Type: 
  Country: None (occurrence: None)
  Receive Date: 20080421
  Receipt Date: 20080408
  Transmission Date: 20081010
  Serious: Yes (Disabling)
  Sender: FDA-Public Use
  Company Number: PHHY2008JP01351

PATIENT
  Age: 53 Year
  Sex: Female
  Weight: 58 kg

DRUGS (4)
  1. ZOMETA [Suspect]
     Indication: METASTASES TO BONE
     Dosage: 4 MG DAILY
     Route: 042
     Dates: start: 20060810, end: 20080110
  2. AREDIA [Suspect]
     Indication: METASTASES TO BONE
     Dosage: 45 MG
     Route: 042
     Dates: start: 20030404, end: 20060713
  3. NOLVADEX [Concomitant]
     Indication: METASTASES TO BONE
     Dosage: 20 MG
     Route: 048
     Dates: start: 20030403, end: 20070509
  4. ARIMIDEX [Concomitant]
     Indication: METASTASES TO BONE
     Dosage: 1 MG
     Route: 048
     Dates: start: 20070510

REACTIONS (4)
  - IMPAIRED HEALING [None]
  - OSTEONECROSIS [None]
  - PAIN IN JAW [None]
  - TOOTH EXTRACTION [None]
